FAERS Safety Report 4914626-X (Version None)
Quarter: 2006Q1

REPORT INFORMATION
  Report Type: 
  Country: None (occurrence: None)
  Receive Date: 20060216
  Receipt Date: 20050930
  Transmission Date: 20060701
  Serious: Yes (Other)
  Sender: FDA-Public Use
  Company Number: US-MERCK-0510USA00932

PATIENT
  Age: 63 Year
  Sex: Female

DRUGS (8)
  1. VIOXX [Suspect]
     Route: 048
     Dates: start: 20020813
  2. LOTREL [Concomitant]
     Route: 048
  3. PEPCID [Concomitant]
     Route: 048
  4. ESTRADIOL [Concomitant]
     Route: 048
  5. HYDROCODONE BITARTRATE AND POTASSIUM GUAIACOLSULFONATE [Concomitant]
     Route: 048
  6. ACETAMINOPHEN AND HYDROCODONE BITARTRATE [Concomitant]
     Route: 048
  7. ALPRAZOLAM [Concomitant]
     Route: 048
  8. PREDNISONE [Concomitant]
     Route: 048

REACTIONS (9)
  - ANGINA PECTORIS [None]
  - ARRHYTHMIA [None]
  - BLADDER DISORDER [None]
  - CEREBROVASCULAR ACCIDENT [None]
  - INCREASED TENDENCY TO BRUISE [None]
  - MYOCARDIAL INFARCTION [None]
  - ORGAN FAILURE [None]
  - PULMONARY EMBOLISM [None]
  - THROMBOSIS [None]
